FAERS Safety Report 4931302-8 (Version None)
Quarter: 2006Q1

REPORT INFORMATION
  Report Type: 
  Country: None (occurrence: None)
  Receive Date: 20060227
  Receipt Date: 20060210
  Transmission Date: 20060701
  Serious: Yes (Other)
  Sender: FDA-Public Use
  Company Number: 2006021M000148

PATIENT
  Age: 56 Year
  Sex: Male

DRUGS (1)
  1. INTERFERON GAMMA-1B [Suspect]
     Indication: METASTATIC RENAL CELL CARCINOMA

REACTIONS (3)
  - METASTATIC RENAL CELL CARCINOMA [None]
  - STEM CELL TRANSPLANT [None]
  - THERAPY NON-RESPONDER [None]
